FAERS Safety Report 17924573 (Version 1)
Quarter: 2020Q2

REPORT INFORMATION
  Report Type: Spontaneous
  Country: FI (occurrence: FI)
  Receive Date: 20200622
  Receipt Date: 20200622
  Transmission Date: 20200714
  Serious: Yes (Life-Threatening)
  Sender: FDA-Public Use
  Company Number: FI-JNJFOC-20200622062

PATIENT
  Age: 76 Year
  Sex: Male

DRUGS (8)
  1. METOJECT PEN [Concomitant]
     Active Substance: METHOTREXATE
     Dosage: 15 MG, OW
  2. MIRABEGRON [Concomitant]
     Active Substance: MIRABEGRON
     Dosage: 50 MG, QD
  3. DIGOXIN. [Concomitant]
     Active Substance: DIGOXIN
     Dosage: UNK
  4. FURESIS [Concomitant]
     Active Substance: FUROSEMIDE
     Dosage: 10 MG, QD
  5. PREDNISOLONE. [Concomitant]
     Active Substance: PREDNISOLONE
     Dosage: 5 MG, QD
  6. SOMAC [Concomitant]
     Active Substance: PANTOPRAZOLE SODIUM
     Dosage: 20 MG, QD
  7. XARELTO [Suspect]
     Active Substance: RIVAROXABAN
     Indication: ATRIAL FIBRILLATION
     Dosage: 20 MG, QD
     Route: 048
     Dates: start: 20180416
  8. PANADOL FORTE [Concomitant]
     Dosage: 3 G, QD

REACTIONS (4)
  - Intraventricular haemorrhage [Recovered/Resolved with Sequelae]
  - Apallic syndrome [Recovered/Resolved with Sequelae]
  - Brain oedema [Recovered/Resolved with Sequelae]
  - Cerebral haemorrhage [Recovered/Resolved with Sequelae]

NARRATIVE: CASE EVENT DATE: 20200525
